FAERS Safety Report 11786044 (Version 1)
Quarter: 2015Q4

REPORT INFORMATION
  Report Type: Spontaneous
  Country: CN (occurrence: CN)
  Receive Date: 20151130
  Receipt Date: 20151130
  Transmission Date: 20160305
  Serious: Yes (Other)
  Sender: FDA-Public Use
  Company Number: CN-PFIZER INC-2015148654

PATIENT
  Age: 43 Year
  Sex: Female

DRUGS (1)
  1. SUTENT [Suspect]
     Active Substance: SUNITINIB MALATE
     Indication: GASTROINTESTINAL STROMAL TUMOUR
     Dosage: UNK
     Dates: start: 2015

REACTIONS (7)
  - Laceration [Unknown]
  - Discomfort [Unknown]
  - Abdominal pain [Unknown]
  - Yellow skin [Unknown]
  - Jaundice [Unknown]
  - Palmar-plantar erythrodysaesthesia syndrome [Unknown]
  - Cleft foot [Unknown]
